FAERS Safety Report 15251496 (Version 1)
Quarter: 2018Q3

REPORT INFORMATION
  Report Type: Spontaneous
  Country: US (occurrence: US)
  Receive Date: 20180807
  Receipt Date: 20180807
  Transmission Date: 20181010
  Serious: No
  Sender: FDA-Public Use
  Company Number: US-GILEAD-2018-0352155

PATIENT
  Age: 58 Year
  Sex: Male

DRUGS (4)
  1. GENVOYA [Suspect]
     Active Substance: COBICISTAT\ELVITEGRAVIR\EMTRICITABINE\TENOFOVIR ALAFENAMIDE FUMARATE
     Indication: HIV INFECTION
     Route: 065
  2. DOLUTEGRAVIR [Concomitant]
     Active Substance: DOLUTEGRAVIR
     Dosage: UNK
     Dates: start: 20180723
  3. VIREAD [Suspect]
     Active Substance: TENOFOVIR DISOPROXIL FUMARATE
     Indication: HIV INFECTION
     Dosage: UNK
     Route: 065
  4. RILPIVIRINE [Concomitant]
     Active Substance: RILPIVIRINE
     Dosage: UNK
     Dates: start: 20180723

REACTIONS (1)
  - Abdominal distension [Unknown]

NARRATIVE: CASE EVENT DATE: 2015
